FAERS Safety Report 5849876-1 (Version None)
Quarter: 2008Q3

REPORT INFORMATION
  Report Type: 
  Country: None (occurrence: None)
  Receive Date: 20080818
  Receipt Date: 20080818
  Transmission Date: 20090109
  Serious: Yes (Other)
  Sender: FDA-Public Use
  Company Number: None

PATIENT
  Sex: Female
  Weight: 68.9467 kg

DRUGS (3)
  1. XYZAL [Suspect]
     Indication: HYPERSENSITIVITY
     Dosage: XYZAL 2.5 MG DAILY PO
     Route: 048
     Dates: start: 20080728, end: 20080730
  2. XYZAL [Suspect]
     Indication: SINUS DISORDER
     Dosage: XYZAL 2.5 MG DAILY PO
     Route: 048
     Dates: start: 20080728, end: 20080730
  3. SINGULAR -SINGULAIR- 10MG MERCK [Suspect]
     Dosage: SINGULAR 10MG DAILY PO
     Route: 048
     Dates: start: 20080728, end: 20080729

REACTIONS (4)
  - DIPLOPIA [None]
  - EYE MOVEMENT DISORDER [None]
  - IMPAIRED DRIVING ABILITY [None]
  - SOMNOLENCE [None]
